FAERS Safety Report 8360116-4 (Version None)
Quarter: 2012Q2

REPORT INFORMATION
  Report Type: 
  Country: None (occurrence: None)
  Receive Date: 20120515
  Receipt Date: 20110609
  Transmission Date: 20120825
  Serious: No
  Sender: FDA-Public Use
  Company Number: US-ALEXION-A201100825

PATIENT
  Sex: Female

DRUGS (3)
  1. ASPIRIN [Concomitant]
     Dosage: UNK
     Route: 048
  2. VITAMIN B-12 [Concomitant]
     Dosage: Q MONTH
  3. SOLIRIS [Suspect]
     Indication: PAROXYSMAL NOCTURNAL HAEMOGLOBINURIA
     Dosage: UNK
     Route: 042
     Dates: start: 20110608

REACTIONS (6)
  - BACK PAIN [None]
  - DYSPNOEA [None]
  - VAGINAL DISCHARGE [None]
  - NAUSEA [None]
  - FATIGUE [None]
  - MYALGIA [None]
